FAERS Safety Report 6064982-7 (Version None)
Quarter: 2009Q1

REPORT INFORMATION
  Report Type: 
  Country: None (occurrence: None)
  Receive Date: 20090204
  Receipt Date: 20090126
  Transmission Date: 20090719
  Serious: Yes (Life-Threatening, Other)
  Sender: FDA-Public Use
  Company Number: GB-ABBOTT-08P-167-0466131-00

PATIENT
  Age: 69 Year
  Sex: Female

DRUGS (3)
  1. ADALIMUMAB [Suspect]
     Indication: CROHN'S DISEASE
     Dosage: NOT REPORTED
     Dates: start: 20040101, end: 20060601
  2. INFLIXIMAB [Suspect]
     Indication: CROHN'S DISEASE
     Dosage: EPISODIC, SIX INFUSIONS
     Dates: start: 20000101, end: 20040101
  3. METHOTREXATE [Suspect]
     Indication: CROHN'S DISEASE
     Dates: start: 20030101

REACTIONS (1)
  - NON-SMALL CELL LUNG CANCER [None]
